FAERS Safety Report 21441235 (Version 1)
Quarter: 2022Q4

REPORT INFORMATION
  Report Type: Spontaneous
  Country: US (occurrence: None)
  Receive Date: 20221010
  Receipt Date: 20221010
  Transmission Date: 20230113
  Serious: Yes (Life-Threatening, Other)
  Sender: FDA-Public Use
  Company Number: None

PATIENT
  Age: 42 Year
  Sex: Male
  Weight: 89.1 kg

DRUGS (2)
  1. DOXYCYCLINE [Suspect]
     Active Substance: DOXYCYCLINE
     Indication: Periorbital dermatitis
     Dosage: FREQUENCY : TWICE A DAY;?
     Route: 048
     Dates: start: 20220914, end: 20220923
  2. hearing aid [Concomitant]

REACTIONS (6)
  - Mood altered [None]
  - Depressed mood [None]
  - Seasonal affective disorder [None]
  - Feeling of despair [None]
  - Suicidal ideation [None]
  - Depression [None]

NARRATIVE: CASE EVENT DATE: 20220923
